FAERS Safety Report 12815434 (Version 1)
Quarter: 2016Q4

REPORT INFORMATION
  Report Type: Spontaneous
  Country: HR (occurrence: HR)
  Receive Date: 20161005
  Receipt Date: 20161005
  Transmission Date: 20170207
  Serious: Yes (Hospitalization, Other)
  Sender: FDA-Public Use
  Company Number: HR-TEVA-696537ACC

PATIENT
  Age: 18 Year
  Sex: Male

DRUGS (2)
  1. SERTRALINE [Suspect]
     Active Substance: SERTRALINE HYDROCHLORIDE
     Route: 048
     Dates: start: 20160725
  2. NORMABEL [Suspect]
     Active Substance: DIAZEPAM
     Route: 048
     Dates: start: 20160725

REACTIONS (6)
  - Agitation [Unknown]
  - Pyrexia [Unknown]
  - Poisoning deliberate [None]
  - Intentional overdose [Unknown]
  - Tremor [Unknown]
  - Suicide attempt [Unknown]

NARRATIVE: CASE EVENT DATE: 20160726
